FAERS Safety Report 6523320-3 (Version None)
Quarter: 2009Q4

REPORT INFORMATION
  Report Type: 
  Country: None (occurrence: None)
  Receive Date: 20091231
  Receipt Date: 20091222
  Transmission Date: 20100525
  Serious: Yes (Other)
  Sender: FDA-Public Use
  Company Number: US-JNJFOC-20091105879

PATIENT
  Sex: Female

DRUGS (1)
  1. NUCYNTA [Suspect]
     Indication: ANALGESIC THERAPY
     Route: 048

REACTIONS (2)
  - GAMBLING [None]
  - OBSESSIVE-COMPULSIVE DISORDER [None]
